FAERS Safety Report 18378616 (Version 2)
Quarter: 2021Q1

REPORT INFORMATION
  Report Type: Spontaneous
  Country: DE (occurrence: DE)
  Receive Date: 20201013
  Receipt Date: 20210104
  Transmission Date: 20210419
  Serious: Yes (Other)
  Sender: FDA-Public Use
  Company Number: DE-ROCHE-2693135

PATIENT
  Age: 68 Year
  Sex: Male

DRUGS (1)
  1. LUCENTIS [Suspect]
     Active Substance: RANIBIZUMAB
     Indication: AGE-RELATED MACULAR DEGENERATION
     Dosage: UNK UNK, QMO
     Route: 031
     Dates: end: 202003

REACTIONS (3)
  - Visual impairment [Recovering/Resolving]
  - Detachment of retinal pigment epithelium [Recovering/Resolving]
  - Retinal oedema [Recovering/Resolving]

NARRATIVE: CASE EVENT DATE: 2019
